FAERS Safety Report 5719755-9 (Version None)
Quarter: 2008Q2

REPORT INFORMATION
  Report Type: 
  Country: None (occurrence: None)
  Receive Date: 20080428
  Receipt Date: 20080421
  Transmission Date: 20081010
  Serious: Yes (Hospitalization)
  Sender: FDA-Public Use
  Company Number: DE-ABBOTT-08P-062-0448072-00

PATIENT
  Sex: Male

DRUGS (5)
  1. HUMIRA [Suspect]
     Indication: CROHN'S DISEASE
     Route: 058
     Dates: start: 20080403
  2. GLUCOCORTICOIDS [Concomitant]
     Indication: CROHN'S DISEASE
     Dosage: 15 MG DAILY
  3. AZATHIOPRINE [Concomitant]
     Indication: CROHN'S DISEASE
     Dosage: 200 MG DAILY
     Route: 048
  4. BUTHYLSCOPOLAMINE [Concomitant]
     Indication: CROHN'S DISEASE
  5. MESALAMINE [Concomitant]
     Indication: CROHN'S DISEASE

REACTIONS (5)
  - BACK PAIN [None]
  - NASOPHARYNGITIS [None]
  - NEPHROLITHIASIS [None]
  - PYREXIA [None]
  - RENAL COLIC [None]
